FAERS Safety Report 10615654 (Version 2)
Quarter: 2014Q4

REPORT INFORMATION
  Report Type: Spontaneous
  Country: BR (occurrence: BR)
  Receive Date: 20141201
  Receipt Date: 20141208
  Transmission Date: 20150529
  Serious: Yes (Other)
  Sender: FDA-Public Use
  Company Number: BR-THROMBOGENICS NV-SPO-2014-1453

PATIENT
  Sex: Female

DRUGS (1)
  1. JETREA [Suspect]
     Active Substance: OCRIPLASMIN
     Indication: VITREOUS ADHESIONS
     Dosage: 0.125 MG, ONE TIME DOSE
     Route: 031
     Dates: start: 20141030, end: 20141030

REACTIONS (3)
  - Visual acuity reduced [Not Recovered/Not Resolved]
  - Lenticular opacities [Unknown]
  - Macular oedema [Unknown]

NARRATIVE: CASE EVENT DATE: 201411
